FAERS Safety Report 9269397 (Version 6)
Quarter: 2013Q4

REPORT INFORMATION
  Report Type: Spontaneous
  Country: US (occurrence: US)
  Receive Date: 20130503
  Receipt Date: 20131204
  Transmission Date: 20140711
  Serious: Yes (Hospitalization, Congenital Anomaly, Other)
  Sender: FDA-Public Use
  Company Number: US-JNJFOC-20130417030

PATIENT
  Sex: Female

DRUGS (3)
  1. TOPAMAX [Suspect]
     Indication: FOETAL EXPOSURE DURING PREGNANCY
     Route: 064
  2. PRENATAL VITAMIN [Concomitant]
     Indication: FOETAL EXPOSURE DURING PREGNANCY
     Route: 064
  3. VITAMIN K [Concomitant]
     Indication: FOETAL EXPOSURE DURING PREGNANCY
     Route: 064

REACTIONS (8)
  - Cleft lip [Recovered/Resolved]
  - Cleft palate [Recovered/Resolved]
  - Failure to thrive [Unknown]
  - Social problem [Unknown]
  - Otitis media chronic [Unknown]
  - Conductive deafness [Not Recovered/Not Resolved]
  - Gastrooesophageal reflux disease [Unknown]
  - Emotional disorder [Unknown]
